FAERS Safety Report 5158150-0 (Version None)
Quarter: 2006Q4

REPORT INFORMATION
  Report Type: 
  Country: None (occurrence: None)
  Receive Date: 20061120
  Receipt Date: 20061120
  Transmission Date: 20070319
  Serious: Yes (Other)
  Sender: FDA-Public Use
  Company Number: None

PATIENT
  Age: 81 Year
  Sex: Female
  Weight: 91.9 kg

DRUGS (1)
  1. NEOSTIGMINE [Suspect]
     Indication: ABDOMINAL DISTENSION
     Dosage: 0.5 MG ONE TIME IV BOLUS
     Route: 040
     Dates: start: 20061116, end: 20061116

REACTIONS (2)
  - INFUSION RELATED REACTION [None]
  - URTICARIA [None]
